FAERS Safety Report 5248635-0 (Version None)
Quarter: 2007Q1

REPORT INFORMATION
  Report Type: 
  Country: None (occurrence: None)
  Receive Date: 20070222
  Receipt Date: 20070212
  Transmission Date: 20070707
  Serious: Yes (Other)
  Sender: FDA-Public Use
  Company Number: 07H-163-0311992-00

PATIENT

DRUGS (2)
  1. ETOMIDATE [Suspect]
     Indication: SEDATIVE THERAPY
     Dosage: 0.1 MG/KG, NOT REPORTED, INJECTION
  2. MORPHINE [Concomitant]

REACTIONS (1)
  - HYPOVENTILATION [None]
